FAERS Safety Report 11147963 (Version 1)
Quarter: 2015Q2

REPORT INFORMATION
  Report Type: Spontaneous
  Country: ZA (occurrence: ZA)
  Receive Date: 20150529
  Receipt Date: 20150529
  Transmission Date: 20150821
  Serious: Yes (Hospitalization, Disabling, Other)
  Sender: FDA-Public Use
  Company Number: ZA-009507513-1505ZAF009404

PATIENT
  Age: 19 Year
  Sex: Female

DRUGS (1)
  1. IMPLANON [Suspect]
     Active Substance: ETONOGESTREL
     Dosage: UNK
     Route: 059
     Dates: start: 20140320, end: 20150516

REACTIONS (7)
  - Surgery [Recovered/Resolved with Sequelae]
  - Medical device complication [Recovered/Resolved with Sequelae]
  - Metrorrhagia [Unknown]
  - Device difficult to use [Recovered/Resolved with Sequelae]
  - General anaesthesia [Recovered/Resolved with Sequelae]
  - Sepsis [Unknown]
  - Device deployment issue [Recovered/Resolved with Sequelae]

NARRATIVE: CASE EVENT DATE: 20140320
